FAERS Safety Report 15848498 (Version 1)
Quarter: 2019Q1

REPORT INFORMATION
  Report Type: Spontaneous
  Country: JP (occurrence: JP)
  Receive Date: 20190121
  Receipt Date: 20190121
  Transmission Date: 20190417
  Serious: Yes (Other)
  Sender: FDA-Public Use
  Company Number: JP-MYLANLABS-2019M1002126

PATIENT
  Age: 62 Year
  Sex: Female

DRUGS (4)
  1. CARBOPLATIN. [Suspect]
     Active Substance: CARBOPLATIN
     Indication: INTESTINAL METASTASIS
  2. CARBOPLATIN. [Suspect]
     Active Substance: CARBOPLATIN
     Indication: SQUAMOUS CELL CARCINOMA
     Route: 042
  3. GIMERACIL W/OTERACIL POTASSIUM/TEGAFUR [Suspect]
     Active Substance: GIMERACIL\OTERACIL\TEGAFUR
     Indication: INTESTINAL METASTASIS
  4. GIMERACIL W/OTERACIL POTASSIUM/TEGAFUR [Suspect]
     Active Substance: GIMERACIL\OTERACIL\TEGAFUR
     Indication: SQUAMOUS CELL CARCINOMA
     Dosage: UNK
     Route: 048

REACTIONS (4)
  - Small intestinal haemorrhage [Recovering/Resolving]
  - Haemorrhagic tumour necrosis [Recovering/Resolving]
  - Anaemia [Recovering/Resolving]
  - Faeces discoloured [Recovering/Resolving]

NARRATIVE: CASE EVENT DATE: 201701
